FAERS Safety Report 26022466 (Version 1)
Quarter: 2025Q4

REPORT INFORMATION
  Report Type: Other
  Country: EU (occurrence: EU)
  Receive Date: 20251110
  Receipt Date: 20251110
  Transmission Date: 20260117
  Serious: Yes (Other)
  Sender: MILLICENT HOLDINGS
  Company Number: EU-Millicent Holdings Ltd.-MILL20250312

PATIENT
  Sex: Male

DRUGS (4)
  1. ESTRADIOL [Suspect]
     Active Substance: ESTRADIOL
     Indication: Feminisation acquired
     Dosage: 100 MG/DAY
     Route: 062
  2. CYPROTERONE ACETATE [Suspect]
     Active Substance: CYPROTERONE ACETATE
     Indication: Feminisation acquired
     Dosage: 50 MG/12 H
     Route: 065
  3. ACECLOFENAC [Suspect]
     Active Substance: ACECLOFENAC
     Indication: Product used for unknown indication
     Dosage: 200 MG/DAY
     Route: 065
  4. DESMOPRESSIN [Suspect]
     Active Substance: DESMOPRESSIN
     Indication: Product used for unknown indication
     Dosage: 10 MCG/DAY INTRANASAL
     Route: 045

REACTIONS (11)
  - Meningioma [Recovering/Resolving]
  - Depressed level of consciousness [Recovering/Resolving]
  - Optic atrophy [Recovering/Resolving]
  - Optic atrophy [Recovering/Resolving]
  - Visual impairment [Recovering/Resolving]
  - Hyponatraemia [Recovering/Resolving]
  - Lethargy [Recovering/Resolving]
  - Nausea [Recovering/Resolving]
  - Vomiting [Recovering/Resolving]
  - Headache [Recovering/Resolving]
  - Dizziness [Recovering/Resolving]
